FAERS Safety Report 16736666 (Version 2)
Quarter: 2019Q4

REPORT INFORMATION
  Report Type: Spontaneous
  Country: GB (occurrence: GB)
  Receive Date: 20190823
  Receipt Date: 20191226
  Transmission Date: 20200122
  Serious: Yes (Death, Life-Threatening, Hospitalization)
  Sender: FDA-Public Use
  Company Number: GB-JNJFOC-20190827614

PATIENT
  Age: 98 Year
  Sex: Female

DRUGS (12)
  1. CARBOCISTEINE [Concomitant]
     Active Substance: CARBOCYSTEINE
     Dosage: 2250 MG, QD
  2. SERTRALINE [Concomitant]
     Active Substance: SERTRALINE HYDROCHLORIDE
     Dosage: 25 MG, QD
  3. NICORANDIL [Concomitant]
     Active Substance: NICORANDIL
  4. SPIRONOLACTONE. [Concomitant]
     Active Substance: SPIRONOLACTONE
  5. GAVISCON [Concomitant]
     Active Substance: ALUMINUM HYDROXIDE\MAGNESIUM CARBONATE
     Dosage: UNK
  6. DIGOXIN. [Concomitant]
     Active Substance: DIGOXIN
  7. WARFARIN [Concomitant]
     Active Substance: WARFARIN
     Dosage: UNK
  8. PARACETAMOL [Concomitant]
     Active Substance: ACETAMINOPHEN
     Dosage: 4 DF, QD
  9. RIVAROXABAN [Suspect]
     Active Substance: RIVAROXABAN
     Indication: ATRIAL FIBRILLATION
     Dosage: 15 MG, UNK
     Route: 048
     Dates: start: 20181203, end: 20190129
  10. LOSARTAN. [Concomitant]
     Active Substance: LOSARTAN
     Dosage: 50 MG, QD
  11. OMEPRAZOLE. [Concomitant]
     Active Substance: OMEPRAZOLE
     Dosage: 20 MG, QD
  12. FUROSEMIDE. [Concomitant]
     Active Substance: FUROSEMIDE
     Dosage: 40 MG, QD

REACTIONS (4)
  - Haematoma [Fatal]
  - Pain [Unknown]
  - Soft tissue necrosis [Unknown]
  - Post procedural haemorrhage [Unknown]

NARRATIVE: CASE EVENT DATE: 20190129
